FAERS Safety Report 9406580 (Version 2)
Quarter: 2013Q3

REPORT INFORMATION
  Report Type: Spontaneous
  Country: CN (occurrence: CN)
  Receive Date: 20130718
  Receipt Date: 20130813
  Transmission Date: 20140515
  Serious: Yes (Other)
  Sender: FDA-Public Use
  Company Number: CN-JNJFOC-20130703561

PATIENT
  Age: 1 Year
  Sex: Male

DRUGS (2)
  1. MOTRIN SUSPENSION [Suspect]
     Indication: PYREXIA
     Route: 048
     Dates: start: 20130703, end: 20130703
  2. MOTRIN SUSPENSION [Suspect]
     Indication: PYREXIA
     Route: 048
     Dates: start: 20130704

REACTIONS (3)
  - Suspected counterfeit product [Unknown]
  - Intentional drug misuse [Recovered/Resolved]
  - Drug ineffective [Recovered/Resolved]
